FAERS Safety Report 13577501 (Version 1)
Quarter: 2017Q2

REPORT INFORMATION
  Report Type: Spontaneous
  Country: US (occurrence: US)
  Receive Date: 20170524
  Receipt Date: 20170524
  Transmission Date: 20170830
  Serious: Yes (Hospitalization)
  Sender: FDA-Public Use
  Company Number: None

PATIENT
  Age: 75 Year
  Sex: Male

DRUGS (2)
  1. SULFAMETHOXAZOLE/TRIMETHOPRIM [Suspect]
     Active Substance: SULFAMETHOXAZOLE\TRIMETHOPRIM
     Indication: PREOPERATIVE CARE
     Dates: start: 20170208, end: 20170212
  2. SULFAMETHOXAZOLE/TRIMETHOPRIM [Suspect]
     Active Substance: SULFAMETHOXAZOLE\TRIMETHOPRIM
     Indication: PROPHYLAXIS
     Dates: start: 20170208, end: 20170212

REACTIONS (5)
  - Dialysis [None]
  - Blood creatinine increased [None]
  - Hyperkalaemia [None]
  - Blood urea increased [None]
  - Metabolic acidosis [None]

NARRATIVE: CASE EVENT DATE: 20170213
